FAERS Safety Report 23084081 (Version 6)
Quarter: 2024Q4

REPORT INFORMATION
  Report Type: Report from Study
  Country: BR (occurrence: BR)
  Receive Date: 20231019
  Receipt Date: 20241016
  Transmission Date: 20250114
  Serious: Yes (Other)
  Sender: NOVARTIS
  Company Number: BR-002147023-NVSC2022BR276783

PATIENT
  Age: 37 Year
  Sex: Female

DRUGS (8)
  1. KISQALI [Suspect]
     Active Substance: RIBOCICLIB
     Indication: Breast cancer
     Dosage: UNK
     Route: 065
     Dates: start: 20221024
  2. KISQALI [Suspect]
     Active Substance: RIBOCICLIB
     Dosage: 3 DOSAGE FORM
     Route: 065
  3. KISQALI [Suspect]
     Active Substance: RIBOCICLIB
     Dosage: 2 DOSAGE FORM
     Route: 065
  4. KISQALI [Suspect]
     Active Substance: RIBOCICLIB
     Dosage: 2 DOSAGE FORM, QD
     Route: 065
  5. KISQALI [Suspect]
     Active Substance: RIBOCICLIB
     Dosage: UNK
     Route: 065
     Dates: start: 20240522
  6. KISQALI [Suspect]
     Active Substance: RIBOCICLIB
     Dosage: 3 DOSAGE FORM
     Route: 065
  7. KISQALI [Suspect]
     Active Substance: RIBOCICLIB
     Dosage: TWO TABLETS A DAY (DOSE REDUCED)
     Route: 065
     Dates: start: 20240909
  8. ANASTROZOLE [Suspect]
     Active Substance: ANASTROZOLE
     Indication: Product used for unknown indication
     Dosage: UNK
     Route: 065

REACTIONS (29)
  - Decreased immune responsiveness [Recovering/Resolving]
  - Nausea [Unknown]
  - Pruritus [Recovered/Resolved]
  - Abdominal distension [Unknown]
  - Feeding disorder [Unknown]
  - Malaise [Recovered/Resolved]
  - Fall [Unknown]
  - Joint injury [Unknown]
  - Limb injury [Unknown]
  - Anxiety [Recovering/Resolving]
  - Weight decreased [Recovered/Resolved]
  - Weight increased [Unknown]
  - Liver disorder [Recovering/Resolving]
  - Pain [Unknown]
  - Decreased immune responsiveness [Recovered/Resolved]
  - Chapped lips [Unknown]
  - Mass [Unknown]
  - Paraesthesia [Unknown]
  - Toothache [Unknown]
  - Pain in extremity [Unknown]
  - Dizziness [Recovering/Resolving]
  - Abdominal pain upper [Unknown]
  - Oral pain [Recovering/Resolving]
  - Stomatitis [Unknown]
  - Asthenia [Recovered/Resolved]
  - Drug intolerance [Recovering/Resolving]
  - Malaise [Unknown]
  - Dengue fever [Recovered/Resolved]
  - Platelet count decreased [Recovered/Resolved]

NARRATIVE: CASE EVENT DATE: 20221101
